FAERS Safety Report 6310890-3 (Version None)
Quarter: 2009Q3

REPORT INFORMATION
  Report Type: 
  Country: None (occurrence: None)
  Receive Date: 20090812
  Receipt Date: 20090729
  Transmission Date: 20100115
  Serious: No
  Sender: FDA-Public Use
  Company Number: 2009-1501

PATIENT
  Age: 71 Year
  Sex: Female

DRUGS (4)
  1. SOMATULINE AUTOSOLUTION    (LANREOTIDE ACETATE) [Suspect]
     Indication: CARCINOID SYNDROME
     Dosage: (90 MG, 1 IN 4 WK) (120 MG, 1 IN 4 WK) INTRAMUSCULAR
     Route: 030
     Dates: end: 20050401
  2. SOMATULINE AUTOSOLUTION    (LANREOTIDE ACETATE) [Suspect]
     Indication: CARCINOID SYNDROME
     Dosage: (90 MG, 1 IN 4 WK) (120 MG, 1 IN 4 WK) INTRAMUSCULAR
     Route: 030
     Dates: start: 20050401
  3. SOMATULINE AUTOSOLUTION (LANREOTIDE ACETATE) [Suspect]
     Indication: CARCINOID SYNDROME
     Dosage: 4.2857 MG (120 MG, 1 IN 4 WK) INTRAMUSCULAR
     Route: 030
     Dates: start: 20050401
  4. VITAMINS (VITAMINS NOS) [Concomitant]

REACTIONS (1)
  - INJECTION SITE NODULE [None]
